FAERS Safety Report 4867413-5 (Version None)
Quarter: 2005Q4

REPORT INFORMATION
  Report Type: 
  Country: None (occurrence: None)
  Receive Date: 20051222
  Receipt Date: 20051211
  Transmission Date: 20060501
  Serious: Yes (Other)
  Sender: FDA-Public Use
  Company Number: 2005166030

PATIENT
  Age: 13 Year
  Sex: Female
  Weight: 50.8029 kg

DRUGS (1)
  1. BENADRYL [Suspect]
     Indication: HYPERSENSITIVITY
     Dosage: RECOMMENDED DOSING ONCE; ORAL
     Route: 048
     Dates: start: 19960101, end: 19960101

REACTIONS (1)
  - DRUG HYPERSENSITIVITY [None]
